FAERS Safety Report 6807636-9 (Version None)
Quarter: 2010Q2

REPORT INFORMATION
  Report Type: 
  Country: None (occurrence: None)
  Receive Date: 20100629
  Receipt Date: 20081107
  Transmission Date: 20101027
  Serious: No
  Sender: FDA-Public Use
  Company Number: US-PFIZER INC-2008090133

PATIENT
  Sex: Female
  Weight: 72.57 kg

DRUGS (6)
  1. XANAX [Suspect]
     Indication: RAPID EYE MOVEMENTS SLEEP ABNORMAL
     Route: 048
     Dates: start: 20081015
  2. KLONOPIN [Suspect]
     Indication: RAPID EYE MOVEMENTS SLEEP ABNORMAL
     Route: 048
     Dates: start: 20080804
  3. LOTREL [Concomitant]
  4. PLAVIX [Concomitant]
  5. OMACOR [Concomitant]
  6. ACTONEL [Concomitant]

REACTIONS (1)
  - ALOPECIA [None]
